FAERS Safety Report 14918609 (Version 2)
Quarter: 2018Q4

REPORT INFORMATION
  Report Type: Spontaneous
  Country: JP (occurrence: JP)
  Receive Date: 20180521
  Receipt Date: 20181029
  Transmission Date: 20190204
  Serious: Yes (Other)
  Sender: FDA-Public Use
  Company Number: JP-PFIZER INC-2018165614

PATIENT
  Age: 74 Year
  Sex: Male

DRUGS (7)
  1. XALKORI [Suspect]
     Active Substance: CRIZOTINIB
     Indication: NON-SMALL CELL LUNG CANCER
     Dosage: 250 MG, 2X/DAY
     Route: 048
     Dates: start: 20180412
  2. DAI-KENCHU-TO [Concomitant]
     Active Substance: MALTOSE
     Dosage: 2.5 G, 3X/DAY
     Dates: start: 20180510
  3. SENNOSIDE A [Concomitant]
     Active Substance: SENNOSIDE A
     Dosage: 12 MG, 1X/DAY
     Dates: start: 20180510
  4. CLOPIDOGREL [Concomitant]
     Active Substance: CLOPIDOGREL BISULFATE
     Dosage: 75 MG, 1X/DAY
  5. HUMALOG [Concomitant]
     Active Substance: INSULIN LISPRO
     Dosage: 4/9/4 (UNSPECIFIED UNIT), 3X/DAY
  6. CANDESARTAN. [Concomitant]
     Active Substance: CANDESARTAN
     Dosage: 4 MG, 1X/DAY
  7. NEXIUM [ESOMEPRAZOLE MAGNESIUM] [Concomitant]
     Dosage: 20 MG, 1X/DAY
     Dates: start: 20180829

REACTIONS (12)
  - Renal impairment [Recovered/Resolved]
  - Oral dysaesthesia [Recovered/Resolved]
  - Oedema peripheral [Recovered/Resolved]
  - Gastritis [Unknown]
  - Dysgeusia [Recovered/Resolved]
  - Oesophagitis [Unknown]
  - Blood creatinine increased [Not Recovered/Not Resolved]
  - Constipation [Recovering/Resolving]
  - Blood potassium increased [Recovered/Resolved]
  - Urine output decreased [Recovered/Resolved]
  - Dysphagia [Recovered/Resolved]
  - Abdominal pain upper [Recovered/Resolved]

NARRATIVE: CASE EVENT DATE: 20180418
